FAERS Safety Report 12213590 (Version 1)
Quarter: 2016Q1

REPORT INFORMATION
  Report Type: Spontaneous
  Country: US (occurrence: None)
  Receive Date: 20160325
  Receipt Date: 20160325
  Transmission Date: 20160526
  Serious: No
  Sender: FDA-Public Use
  Company Number: None

PATIENT
  Age: 72 Year
  Sex: Male

DRUGS (7)
  1. PRAVASTATIN [Concomitant]
     Active Substance: PRAVASTATIN\PRAVASTATIN SODIUM
  2. VITAMIN B12 [Concomitant]
     Active Substance: CYANOCOBALAMIN
  3. AMLODIPINE [Concomitant]
     Active Substance: AMLODIPINE BESYLATE
  4. SUTENT [Suspect]
     Active Substance: SUNITINIB MALATE
     Indication: RENAL CANCER
     Dosage: SUTENT 37.5MG CAP 14 DAYS ON 7 DAYS OFF PO QD??
     Route: 048
     Dates: start: 20150215
  5. TAMSULOSIN [Concomitant]
     Active Substance: TAMSULOSIN
  6. BENEZERIL [Concomitant]
  7. HYDROCHLOROT [Concomitant]
     Active Substance: HYDROCHLOROTHIAZIDE

REACTIONS (3)
  - Palmar-plantar erythrodysaesthesia syndrome [None]
  - Blister [None]
  - Platelet count decreased [None]

NARRATIVE: CASE EVENT DATE: 20160215
